FAERS Safety Report 22172712 (Version 1)
Quarter: 2023Q2

REPORT INFORMATION
  Report Type: Spontaneous
  Country: CA (occurrence: None)
  Receive Date: 20230403
  Receipt Date: 20230403
  Transmission Date: 20230722
  Serious: Yes (Other)
  Sender: FDA-Public Use
  Company Number: None

PATIENT
  Age: 35 Year
  Sex: Female
  Weight: 69.75 kg

DRUGS (1)
  1. GRASTEK [Suspect]
     Active Substance: PHLEUM PRATENSE POLLEN
     Indication: Hypersensitivity
     Dosage: OTHER STRENGTH : BAU;?OTHER QUANTITY : 15 SUBLINGUAL TABLET;?FREQUENCY : DAILY;?
     Route: 060
     Dates: start: 20230309, end: 20230331

REACTIONS (2)
  - Dyspepsia [None]
  - Pharyngeal swelling [None]

NARRATIVE: CASE EVENT DATE: 20230323
